FAERS Safety Report 13490448 (Version 3)
Quarter: 2017Q2

REPORT INFORMATION
  Report Type: Report from Study
  Country: US (occurrence: US)
  Receive Date: 20170427
  Receipt Date: 20170616
  Transmission Date: 20170830
  Serious: Yes (Hospitalization)
  Sender: FDA-Public Use
  Company Number: US-GILEAD-2017-0269756

PATIENT
  Age: 6 Year
  Sex: Female

DRUGS (8)
  1. REVATIO [Concomitant]
     Active Substance: SILDENAFIL CITRATE
  2. MEROPENEM. [Concomitant]
     Active Substance: MEROPENEM
  3. AMBRISENTAN [Suspect]
     Active Substance: AMBRISENTAN
     Indication: PULMONARY ARTERIAL HYPERTENSION
     Dosage: 5 MG, QD
     Route: 048
     Dates: start: 20170211
  4. SYMBICORT [Concomitant]
     Active Substance: BUDESONIDE\FORMOTEROL FUMARATE DIHYDRATE
  5. HEPARIN [Concomitant]
     Active Substance: HEPARIN SODIUM
  6. TREPROSTINIL [Concomitant]
     Active Substance: TREPROSTINIL
  7. FUROSEMIDE. [Concomitant]
     Active Substance: FUROSEMIDE
  8. VANCOMYCIN [Concomitant]
     Active Substance: VANCOMYCIN

REACTIONS (3)
  - Drug dose omission [Unknown]
  - Bacterial infection [Unknown]
  - Off label use [Not Recovered/Not Resolved]

NARRATIVE: CASE EVENT DATE: 20170401
